FAERS Safety Report 16306793 (Version 2)
Quarter: 2021Q1

REPORT INFORMATION
  Report Type: Spontaneous
  Country: US (occurrence: US)
  Receive Date: 20190513
  Receipt Date: 20210203
  Transmission Date: 20210419
  Serious: Yes (Other)
  Sender: FDA-Public Use
  Company Number: US-ASTRAZENECA-2019SE67218

PATIENT
  Age: 55 Year
  Sex: Male
  Weight: 82.6 kg

DRUGS (53)
  1. COMBIGAN [Concomitant]
     Active Substance: BRIMONIDINE TARTRATE\TIMOLOL MALEATE
  2. HYDROCHLOROTHIAZIDE. [Concomitant]
     Active Substance: HYDROCHLOROTHIAZIDE
  3. HYDROCODONE BITARTRATE AND ACETAMINOPHEN [Concomitant]
     Active Substance: ACETAMINOPHEN\HYDROCODONE BITARTRATE
  4. PROMETHAZINE [Concomitant]
     Active Substance: PROMETHAZINE HYDROCHLORIDE
  5. CYCLOBENZAPRINE. [Concomitant]
     Active Substance: CYCLOBENZAPRINE
  6. DULOXETINE DR [Concomitant]
     Active Substance: DULOXETINE
  7. VIBRAMYCIN [Concomitant]
     Active Substance: DOXYCYCLINE
  8. PRINIVIL [Concomitant]
     Active Substance: LISINOPRIL
  9. ELAVIL [Concomitant]
     Active Substance: AMITRIPTYLINE HYDROCHLORIDE
  10. XARELTO [Concomitant]
     Active Substance: RIVAROXABAN
  11. NITROGLYCERIN. [Concomitant]
     Active Substance: NITROGLYCERIN
  12. LIDOCAINE. [Concomitant]
     Active Substance: LIDOCAINE
  13. ZOSTER [Concomitant]
  14. FLUCONAZOLE. [Concomitant]
     Active Substance: FLUCONAZOLE
  15. DESCOVY [Concomitant]
     Active Substance: EMTRICITABINE\TENOFOVIR ALAFENAMIDE FUMARATE
  16. CLINDAMYCIN. [Concomitant]
     Active Substance: CLINDAMYCIN
  17. VENTOLIN HFA [Concomitant]
     Active Substance: ALBUTEROL SULFATE
  18. BANOPHEN [Concomitant]
     Active Substance: DIPHENHYDRAMINE HYDROCHLORIDE
  19. AMOXICILLIN. [Concomitant]
     Active Substance: AMOXICILLIN
  20. AMMONIUM LACTATE. [Concomitant]
     Active Substance: AMMONIUM LACTATE
  21. MIRAPEX [Concomitant]
     Active Substance: PRAMIPEXOLE DIHYDROCHLORIDE
  22. STRIBILD [Concomitant]
     Active Substance: COBICISTAT\ELVITEGRAVIR\EMTRICITABINE\TENOFOVIR DISOPROXIL FUMARATE
  23. BUTRANS [Concomitant]
     Active Substance: BUPRENORPHINE
  24. TOPIRAMATE. [Concomitant]
     Active Substance: TOPIRAMATE
  25. ONDANSETRON [Concomitant]
     Active Substance: ONDANSETRON
  26. OXYCODONE [Concomitant]
     Active Substance: OXYCODONE
  27. ZOLPIDEM [Concomitant]
     Active Substance: ZOLPIDEM TARTRATE
  28. NARCAN [Concomitant]
     Active Substance: NALOXONE HYDROCHLORIDE
  29. POLYETHYLENE GLYCOL [Concomitant]
     Active Substance: POLYETHYLENE GLYCOLS
  30. MYCOSTATIN [Concomitant]
     Active Substance: NYSTATIN
  31. NASONEX [Concomitant]
     Active Substance: MOMETASONE FUROATE
  32. NEXIUM 24HR [Suspect]
     Active Substance: ESOMEPRAZOLE MAGNESIUM
     Indication: GASTROOESOPHAGEAL REFLUX DISEASE
     Route: 048
     Dates: start: 2014, end: 2019
  33. POTASSIUM CHLORIDE. [Concomitant]
     Active Substance: POTASSIUM CHLORIDE
  34. AMLACTIN [Concomitant]
     Active Substance: AMMONIUM LACTATE
  35. PERIDEX [Concomitant]
     Active Substance: CHLORHEXIDINE GLUCONATE
  36. COLACE [Concomitant]
     Active Substance: DOCUSATE SODIUM
  37. PRILOSEC [Suspect]
     Active Substance: OMEPRAZOLE MAGNESIUM
     Indication: GASTROOESOPHAGEAL REFLUX DISEASE
     Dosage: GENERIC
     Route: 048
     Dates: start: 20190527
  38. PRILOSEC OTC [Suspect]
     Active Substance: OMEPRAZOLE MAGNESIUM
     Indication: GASTROOESOPHAGEAL REFLUX DISEASE
     Route: 048
     Dates: start: 2003, end: 2019
  39. CYPROHEPTADIN [Concomitant]
     Active Substance: CYPROHEPTADINE HYDROCHLORIDE
  40. COUMADIN [Concomitant]
     Active Substance: WARFARIN SODIUM
  41. NEXIUM [Suspect]
     Active Substance: ESOMEPRAZOLE MAGNESIUM
     Indication: GASTROOESOPHAGEAL REFLUX DISEASE
     Route: 048
     Dates: start: 2001, end: 2009
  42. PRILOSEC [Suspect]
     Active Substance: OMEPRAZOLE MAGNESIUM
     Indication: GASTROOESOPHAGEAL REFLUX DISEASE
     Route: 048
     Dates: start: 1993, end: 2019
  43. TIVICAY [Concomitant]
     Active Substance: DOLUTEGRAVIR SODIUM
  44. VIRTUSSIN [Concomitant]
  45. PREGABALIN. [Concomitant]
     Active Substance: PREGABALIN
  46. TRUVADA [Concomitant]
     Active Substance: EMTRICITABINE\TENOFOVIR DISOPROXIL FUMARATE
  47. CORTEF [Concomitant]
     Active Substance: HYDROCORTISONE
  48. PREDNISOLONE. [Concomitant]
     Active Substance: PREDNISOLONE
  49. DIPHENHYDRAMINE. [Concomitant]
     Active Substance: DIPHENHYDRAMINE
  50. CLOTRIMAZOLE. [Concomitant]
     Active Substance: CLOTRIMAZOLE
  51. NUCYNTA [Concomitant]
     Active Substance: TAPENTADOL HYDROCHLORIDE
  52. LOVENOX [Concomitant]
     Active Substance: ENOXAPARIN SODIUM
  53. FACTOR V LEIDEN [Concomitant]

REACTIONS (2)
  - Renal failure [Unknown]
  - Chronic kidney disease [Not Recovered/Not Resolved]

NARRATIVE: CASE EVENT DATE: 2018
